FAERS Safety Report 11934331 (Version 1)
Quarter: 2016Q1

REPORT INFORMATION
  Report Type: Spontaneous
  Country: US (occurrence: US)
  Receive Date: 20160121
  Receipt Date: 20160121
  Transmission Date: 20160526
  Serious: No
  Sender: FDA-Public Use
  Company Number: US-RECRO PHARMA-ALK-2015-004679

PATIENT

DRUGS (1)
  1. VERAPAMIL HCL EXTENDED-RELEASE CAPSULE [Suspect]
     Active Substance: VERAPAMIL HYDROCHLORIDE
     Indication: ESSENTIAL HYPERTENSION
     Dosage: 200 MG, UNK
     Route: 048

REACTIONS (1)
  - Drug ineffective [Unknown]
